FAERS Safety Report 4593240-2 (Version None)
Quarter: 2005Q1

REPORT INFORMATION
  Report Type: 
  Country: None (occurrence: None)
  Receive Date: 20050224
  Receipt Date: 20040319
  Transmission Date: 20050727
  Serious: No
  Sender: FDA-Public Use
  Company Number: US-BRISTOL-MYERS SQUIBB COMPANY-12540985

PATIENT
  Age: 65 Year
  Sex: Male
  Weight: 79 kg

DRUGS (1)
  1. EXCEDRIN (MIGRAINE) [Suspect]
     Indication: HEADACHE
     Dosage: DATE REPORTED AS 19-MAR-04 ^AT NIGHT.^  REPORT RECEIVED 19-MAR-04 AM.
     Route: 048
     Dates: start: 20040301, end: 20040301

REACTIONS (1)
  - ABDOMINAL PAIN UPPER [None]
